FAERS Safety Report 24449439 (Version 1)
Quarter: 2024Q4

REPORT INFORMATION
  Report Type: Spontaneous
  Country: IT (occurrence: IT)
  Receive Date: 20241017
  Receipt Date: 20241017
  Transmission Date: 20250115
  Serious: Yes (Life-Threatening, Other)
  Sender: AUROBINDO
  Company Number: IT-MLMSERVICE-20240927-PI210980-00252-1

PATIENT
  Age: 50 Year
  Sex: Female

DRUGS (11)
  1. OXYCODONE [Suspect]
     Active Substance: OXYCODONE
     Indication: Back pain
     Dosage: 10 MILLIGRAM, 3 TIMES A DAY
     Route: 065
     Dates: start: 202211
  2. OXYCODONE [Suspect]
     Active Substance: OXYCODONE
     Dosage: 10 MILLIGRAM, TWO TIMES A DAY
     Dates: start: 201905, end: 201906
  3. OXYCODONE [Suspect]
     Active Substance: OXYCODONE
     Dosage: 30 MILLIGRAM, TWO TIMES A DAY
     Dates: start: 201908, end: 201909
  4. OXYCODONE [Suspect]
     Active Substance: OXYCODONE
     Dosage: TAPERING PHASE
     Route: 065
     Dates: start: 202208, end: 2022
  5. OXYCODONE [Suspect]
     Active Substance: OXYCODONE
     Dosage: 40 MILLIGRAM, TWO TIMES A DAY
     Route: 065
     Dates: start: 201909, end: 202002
  6. OXYCODONE [Suspect]
     Active Substance: OXYCODONE
     Dosage: 30 MILLIGRAM, 3 TIMES A DAY
     Route: 065
     Dates: start: 202003, end: 202107
  7. OXYCODONE [Suspect]
     Active Substance: OXYCODONE
     Dosage: 15 MILLIGRAM, TWO TIMES A DAY
     Route: 065
     Dates: start: 201906, end: 201907
  8. OXYCODONE [Suspect]
     Active Substance: OXYCODONE
     Dosage: 45 MILLIGRAM, 3 TIMES A DAY
     Route: 065
     Dates: start: 202209, end: 2022
  9. OXYCODONE [Suspect]
     Active Substance: OXYCODONE
     Dosage: 20 MILLIGRAM, 3 TIMES A DAY
     Route: 065
     Dates: start: 201907, end: 201908
  10. GABAPENTIN [Concomitant]
     Active Substance: GABAPENTIN
     Indication: Back pain
     Dosage: 300 MILLIGRAM, 3 TIMES A DAY
     Route: 065
     Dates: start: 201905
  11. ACETAMINOPHEN\OXYCODONE HYDROCHLORIDE [Concomitant]
     Active Substance: ACETAMINOPHEN\OXYCODONE HYDROCHLORIDE
     Indication: Product used for unknown indication
     Dosage: UNK, AS RESCUE THERAPY
     Route: 065
     Dates: start: 2019

REACTIONS (4)
  - Hypertensive crisis [Recovered/Resolved]
  - Drug withdrawal syndrome [Recovered/Resolved]
  - Decreased appetite [Recovered/Resolved]
  - Abdominal pain upper [Recovered/Resolved]

NARRATIVE: CASE EVENT DATE: 20221101
